FAERS Safety Report 14662177 (Version 1)
Quarter: 2018Q1

REPORT INFORMATION
  Report Type: Spontaneous
  Country: IT (occurrence: IT)
  Receive Date: 20180321
  Receipt Date: 20180321
  Transmission Date: 20180509
  Serious: Yes (Other)
  Sender: FDA-Public Use
  Company Number: IT-CIPLA LTD.-2018IT11447

PATIENT

DRUGS (5)
  1. FLUOROURACILE TEVA [Suspect]
     Active Substance: FLUOROURACIL
     Indication: RECTAL ADENOCARCINOMA
     Dosage: 600 MG, CYCLICAL
     Route: 040
     Dates: start: 20170424
  2. CALCIO LEVOFOLINATO [Suspect]
     Active Substance: LEVOLEUCOVORIN CALCIUM
     Indication: RECTAL ADENOCARCINOMA
     Dosage: 200 MG/M^2, CYCLICAL
     Route: 042
     Dates: start: 20170424
  3. FLUOROURACILE TEVA [Suspect]
     Active Substance: FLUOROURACIL
     Dosage: 2400 MG/M^2, CYCLICAL
     Route: 065
     Dates: start: 20170424
  4. IRINOTECAN [Suspect]
     Active Substance: IRINOTECAN
     Indication: RECTAL ADENOCARCINOMA
     Dosage: 180 MG/M^2, CYCLICAL
     Route: 065
     Dates: start: 20170424
  5. AVASTIN [Suspect]
     Active Substance: BEVACIZUMAB
     Indication: RECTAL ADENOCARCINOMA
     Dosage: 250 MG, CYCLICAL
     Route: 042
     Dates: start: 20170424

REACTIONS (1)
  - Transaminases increased [Recovering/Resolving]

NARRATIVE: CASE EVENT DATE: 20170918
